FAERS Safety Report 25575617 (Version 3)
Quarter: 2025Q4

REPORT INFORMATION
  Report Type: Spontaneous
  Country: GB (occurrence: GB)
  Receive Date: 20250718
  Receipt Date: 20251105
  Transmission Date: 20260118
  Serious: Yes (Other)
  Sender: TEVA
  Company Number: GB-BIOVITRUM-2025-GB-009246

PATIENT
  Age: 19 Month
  Sex: Female

DRUGS (31)
  1. CYCLOSPORINE [Suspect]
     Active Substance: CYCLOSPORINE
     Indication: Haemophagocytic lymphohistiocytosis
     Route: 048
  2. CYCLOSPORINE [Suspect]
     Active Substance: CYCLOSPORINE
     Indication: Haemophagocytic lymphohistiocytosis
     Dosage: DOSAGE: 3 MG/G HIGH DOSE
     Route: 065
  3. DEXAMETHASONE [Suspect]
     Active Substance: DEXAMETHASONE
     Indication: Haemophagocytic lymphohistiocytosis
     Dosage: 10MG/M2 TO VARYING DOSES SINCE AROUND 16-MAY-2025
     Route: 048
     Dates: start: 20250516, end: 20250525
  4. DEXAMETHASONE [Suspect]
     Active Substance: DEXAMETHASONE
     Indication: Haemophagocytic lymphohistiocytosis
     Route: 065
     Dates: start: 20250624
  5. DEXAMETHASONE [Suspect]
     Active Substance: DEXAMETHASONE
     Indication: Haemophagocytic lymphohistiocytosis
     Dosage: WEANED TO 5MG/M2 DUE TO RAISING ADV
     Route: 065
     Dates: start: 20250529, end: 20250619
  6. DEXAMETHASONE [Suspect]
     Active Substance: DEXAMETHASONE
     Indication: Haemophagocytic lymphohistiocytosis
     Dosage: DOWN TO 5MG/M2 IN VIEW OF RISE IN EBV/ADV
     Route: 065
     Dates: start: 20250630
  7. DEXAMETHASONE [Suspect]
     Active Substance: DEXAMETHASONE
     Indication: Haemophagocytic lymphohistiocytosis
     Dosage: 10MG/M?? (DOSE SPLIT INTO TWICE A DAY DOSING)
     Route: 065
     Dates: start: 20250525
  8. ETOPOSIDE [Suspect]
     Active Substance: ETOPOSIDE
     Indication: Haemophagocytic lymphohistiocytosis
     Dosage: INITIALLY TWICE A WEEK ? 4 DOSES, THEN EVERY 2 WEEKS
     Route: 042
  9. ETOPOSIDE [Suspect]
     Active Substance: ETOPOSIDE
     Indication: Haemophagocytic lymphohistiocytosis
     Route: 065
     Dates: start: 20250629
  10. ETOPOSIDE [Suspect]
     Active Substance: ETOPOSIDE
     Indication: Haemophagocytic lymphohistiocytosis
     Route: 065
     Dates: start: 20250617
  11. ETOPOSIDE [Suspect]
     Active Substance: ETOPOSIDE
     Indication: Haemophagocytic lymphohistiocytosis
     Route: 065
     Dates: start: 20250613
  12. ETOPOSIDE [Suspect]
     Active Substance: ETOPOSIDE
     Indication: Haemophagocytic lymphohistiocytosis
     Route: 065
     Dates: start: 20250719
  13. ETOPOSIDE [Suspect]
     Active Substance: ETOPOSIDE
     Indication: Haemophagocytic lymphohistiocytosis
     Route: 065
     Dates: start: 20250609
  14. KINERET [Suspect]
     Active Substance: ANAKINRA
     Indication: Haemophagocytic lymphohistiocytosis
     Dosage: 1 MONTH OF TREATMENT AT 10MG/KG/DAY
     Route: 058
     Dates: start: 20250516, end: 20250610
  15. METHYLPREDNISOLONE [Suspect]
     Active Substance: METHYLPREDNISOLONE
     Indication: Product used for unknown indication
     Dosage: PULSE DOSES
     Route: 065
     Dates: start: 20250528
  16. METHYLPREDNISOLONE [Suspect]
     Active Substance: METHYLPREDNISOLONE
     Indication: Product used for unknown indication
     Route: 065
     Dates: start: 20250517
  17. METHYLPREDNISOLONE [Suspect]
     Active Substance: METHYLPREDNISOLONE
     Indication: Product used for unknown indication
     Dosage: PULSE DOSES
     Route: 065
     Dates: start: 20250526
  18. METHYLPREDNISOLONE [Suspect]
     Active Substance: METHYLPREDNISOLONE
     Indication: Product used for unknown indication
     Dosage: PULSE DOSES
     Route: 065
     Dates: start: 20250516
  19. METHYLPREDNISOLONE [Suspect]
     Active Substance: METHYLPREDNISOLONE
     Indication: Product used for unknown indication
     Dosage: PULSE DOSES
     Route: 065
     Dates: start: 20250515
  20. METHYLPREDNISOLONE [Suspect]
     Active Substance: METHYLPREDNISOLONE
     Indication: Product used for unknown indication
     Dosage: PULSE DOSES
     Route: 065
     Dates: start: 20250527
  21. AMBISOME [Concomitant]
     Active Substance: AMPHOTERICIN B
     Indication: Fungal infection
  22. AMBISOME [Concomitant]
     Active Substance: AMPHOTERICIN B
     Indication: Fungal infection
  23. RITUXIMAB [Suspect]
     Active Substance: RITUXIMAB
     Indication: Epstein-Barr virus infection
     Dosage: 4 TIMES
     Route: 065
  24. RITUXIMAB [Suspect]
     Active Substance: RITUXIMAB
     Indication: Epstein-Barr virus infection
     Dosage: 4 TIMES
     Route: 065
  25. GAMIFANT [Suspect]
     Active Substance: EMAPALUMAB-LZSG
     Indication: Haemophagocytic lymphohistiocytosis
     Route: 065
  26. MEROPENEM [Concomitant]
     Active Substance: MEROPENEM
     Indication: Haemophagocytic lymphohistiocytosis
  27. MEROPENEM [Concomitant]
     Active Substance: MEROPENEM
     Indication: Haemophagocytic lymphohistiocytosis
  28. MEROPENEM [Concomitant]
     Active Substance: MEROPENEM
     Indication: Haemophagocytic lymphohistiocytosis
  29. PREDNISOLONE [Suspect]
     Active Substance: PREDNISOLONE
     Indication: Haemophagocytic lymphohistiocytosis
     Route: 065
     Dates: start: 20250521
  30. PREDNISOLONE [Suspect]
     Active Substance: PREDNISOLONE
     Indication: Haemophagocytic lymphohistiocytosis
     Route: 065
     Dates: start: 20250520
  31. PREDNISOLONE [Suspect]
     Active Substance: PREDNISOLONE
     Indication: Haemophagocytic lymphohistiocytosis
     Route: 065

REACTIONS (5)
  - Haemophagocytic lymphohistiocytosis [Recovering/Resolving]
  - Condition aggravated [Recovering/Resolving]
  - Epstein-Barr virus infection [Recovering/Resolving]
  - Adenovirus infection [Unknown]
  - Off label use [Recovered/Resolved]

NARRATIVE: CASE EVENT DATE: 20250516
